FAERS Safety Report 6184035-7 (Version None)
Quarter: 2009Q2

REPORT INFORMATION
  Report Type: 
  Country: None (occurrence: None)
  Receive Date: 20090508
  Receipt Date: 20090429
  Transmission Date: 20091009
  Serious: Yes (Hospitalization)
  Sender: FDA-Public Use
  Company Number: CH-ASTRAZENECA-2009PK01186

PATIENT
  Age: 88 Year
  Sex: Female
  Weight: 58.6 kg

DRUGS (9)
  1. NEXIUM [Suspect]
     Indication: DUODENAL ULCER
     Dosage: 138 MG; 98 MG AS BOLUS INJECTION PLUS 40 MG AS DRIP INFUSION
     Route: 041
     Dates: start: 20090407, end: 20090407
  2. KLACID [Concomitant]
     Route: 048
     Dates: start: 20090407, end: 20090417
  3. AMOXICILLIN [Concomitant]
     Route: 048
     Dates: start: 20090407, end: 20090417
  4. LAXOBERON [Concomitant]
     Route: 048
     Dates: start: 20090330, end: 20090410
  5. DAFALGAN [Concomitant]
     Route: 048
     Dates: start: 20090324, end: 20090407
  6. METOPROLOL TARTRATE [Concomitant]
     Dosage: LONG TERM
     Route: 048
     Dates: end: 20090406
  7. COZAAR [Concomitant]
     Dosage: LONG TERM
     Route: 048
     Dates: end: 20090407
  8. ASPIRIN [Concomitant]
     Dosage: LONG TERM
     Route: 048
     Dates: end: 20090407
  9. VITARUBIN [Concomitant]
     Route: 048
     Dates: start: 20090405, end: 20090412

REACTIONS (2)
  - ACCIDENTAL OVERDOSE [None]
  - INCORRECT DRUG ADMINISTRATION RATE [None]
